FAERS Safety Report 4946932-7 (Version None)
Quarter: 2006Q1

REPORT INFORMATION
  Report Type: 
  Country: None (occurrence: None)
  Receive Date: 20060313
  Receipt Date: 20060228
  Transmission Date: 20060701
  Serious: Yes (Hospitalization, Other)
  Sender: FDA-Public Use
  Company Number: 2006029425

PATIENT
  Sex: Male

DRUGS (10)
  1. VIAGRA [Suspect]
     Indication: ERECTILE DYSFUNCTION
     Dosage: (1 IN 1 D), ORAL
     Route: 048
  2. TADALAFIL (TADALAFIL) [Suspect]
     Indication: ERECTILE DYSFUNCTION
     Dosage: ORAL
     Route: 048
  3. NEURONTIN [Concomitant]
  4. NAPROSYN [Concomitant]
  5. GLUCOPHAGE [Concomitant]
  6. PREVACID [Concomitant]
  7. OXYCODONE (OXYCODONE) [Concomitant]
  8. OTHER ANTI-ASTHMATICS, INHALANTS (OTHER ANTI-ASTHMATICS, INHALANTS) [Concomitant]
  9. ANALGESICS (ANALGESICS) [Concomitant]
  10. ALL OTHER THERAPEUTIC PRODUCTS (ALL OTHER THERAPEUTIC PRODUCTS) [Concomitant]

REACTIONS (14)
  - ABDOMINAL HERNIA [None]
  - BLOOD PRESSURE INCREASED [None]
  - BURNING SENSATION [None]
  - DECREASED APPETITE [None]
  - DRUG INEFFECTIVE [None]
  - DRY MOUTH [None]
  - FATIGUE [None]
  - INAPPROPRIATE SCHEDULE OF DRUG ADMINISTRATION [None]
  - NECK MASS [None]
  - NEOPLASM [None]
  - PAIN [None]
  - PALPITATIONS [None]
  - SENSATION OF HEAVINESS [None]
  - SLUGGISHNESS [None]
